FAERS Safety Report 6419015-7 (Version None)
Quarter: 2009Q4

REPORT INFORMATION
  Report Type: 
  Country: None (occurrence: None)
  Receive Date: 20091029
  Receipt Date: 20091021
  Transmission Date: 20100525
  Serious: Yes (Congenital Anomaly)
  Sender: FDA-Public Use
  Company Number: BR-ASTRAZENECA-2009SE21866

PATIENT
  Age: 0 Week

DRUGS (1)
  1. ZOLADEX [Suspect]
     Indication: ENDOMETRIOSIS
     Route: 064
     Dates: start: 20090423, end: 20091021

REACTIONS (1)
  - OSTEOGENESIS IMPERFECTA [None]
